FAERS Safety Report 5280379-1 (Version None)
Quarter: 2007Q1

REPORT INFORMATION
  Report Type: 
  Country: None (occurrence: None)
  Receive Date: 20070326
  Receipt Date: 20070326
  Transmission Date: 20070707
  Serious: Yes (Other)
  Sender: FDA-Public Use
  Company Number: None

PATIENT
  Age: 30 Year
  Sex: Female
  Weight: 114.3 kg

DRUGS (2)
  1. IOHEXOL 320MGI/ML AMERSHAM HEALTH [Suspect]
     Indication: SCAN WITH CONTRAST
     Dosage: 145ML ONCE IV BOLUS
     Route: 040
     Dates: start: 20061021, end: 20061021
  2. IBUPROFEN [Concomitant]

REACTIONS (3)
  - CONSTIPATION [None]
  - RASH PRURITIC [None]
  - SALIVARY HYPERSECRETION [None]
